FAERS Safety Report 5471578-4 (Version None)
Quarter: 2007Q3

REPORT INFORMATION
  Report Type: 
  Country: None (occurrence: None)
  Receive Date: 20070928
  Receipt Date: 20070122
  Transmission Date: 20080115
  Serious: No
  Sender: FDA-Public Use
  Company Number: US-BRISTOL-MYERS SQUIBB COMPANY-13651674

PATIENT
  Age: 88 Year
  Sex: Male

DRUGS (11)
  1. DEFINITY [Suspect]
     Indication: ATRIAL FIBRILLATION
  2. COREG [Concomitant]
  3. COLACE [Concomitant]
  4. PROTONIX [Concomitant]
  5. LOPRESSOR [Concomitant]
  6. ZESTRIL [Concomitant]
  7. HYDROCHLOROTHIAZIDE [Concomitant]
  8. FLOMAX [Concomitant]
  9. SYNTHROID [Concomitant]
  10. NITROGLYCERIN [Concomitant]
  11. COUMADIN [Concomitant]

REACTIONS (1)
  - BACK PAIN [None]
